FAERS Safety Report 13661971 (Version 2)
Quarter: 2017Q2

REPORT INFORMATION
  Report Type: Spontaneous
  Country: SE (occurrence: SE)
  Receive Date: 20170616
  Receipt Date: 20170623
  Transmission Date: 20170830
  Serious: Yes (Other)
  Sender: FDA-Public Use
  Company Number: SE-BAUSCH-BL-2017-019214

PATIENT
  Age: 70 Year
  Sex: Female

DRUGS (1)
  1. ZYCLARA [Suspect]
     Active Substance: IMIQUIMOD
     Indication: ACTINIC KERATOSIS
     Route: 061
     Dates: start: 20170504, end: 20170513

REACTIONS (4)
  - Nausea [Not Recovered/Not Resolved]
  - International normalised ratio increased [Not Recovered/Not Resolved]
  - Atrial fibrillation [Not Recovered/Not Resolved]
  - Vomiting [Not Recovered/Not Resolved]

NARRATIVE: CASE EVENT DATE: 20170513
